FAERS Safety Report 8168656-8 (Version None)
Quarter: 2012Q1

REPORT INFORMATION
  Report Type: 
  Country: None (occurrence: None)
  Receive Date: 20120103
  Receipt Date: 20110926
  Transmission Date: 20120608
  Serious: No
  Sender: FDA-Public Use
  Company Number: AE-2011-001820

PATIENT
  Sex: Female
  Weight: 86.1834 kg

DRUGS (5)
  1. INCIVEK [Suspect]
     Dosage: 2250 MG (750 MG,1 IN 8 HR),ORAL
     Route: 048
     Dates: start: 20110831
  2. FLEXERIL [Concomitant]
  3. PEGASYS [Concomitant]
  4. XANAX [Concomitant]
  5. RIBASPHERE [Concomitant]

REACTIONS (4)
  - DIARRHOEA [None]
  - CHILLS [None]
  - PROCTALGIA [None]
  - ABDOMINAL PAIN UPPER [None]
